FAERS Safety Report 22319709 (Version 1)
Quarter: 2023Q2

REPORT INFORMATION
  Report Type: Spontaneous
  Country: DK (occurrence: DK)
  Receive Date: 20230515
  Receipt Date: 20230515
  Transmission Date: 20230721
  Serious: Yes (Other)
  Sender: FDA-Public Use
  Company Number: None

PATIENT
  Age: 41 Year
  Sex: Female
  Weight: 65 kg

DRUGS (5)
  1. LEVONORGESTREL [Suspect]
     Active Substance: LEVONORGESTREL
     Indication: Post coital contraception
     Dosage: STRENGTH: 1.5 MG
     Route: 048
     Dates: start: 20210118, end: 20210118
  2. SERTRALINE [Suspect]
     Active Substance: SERTRALINE HYDROCHLORIDE
     Indication: Depression
     Dosage: STRENGTH: 100 MG
     Route: 048
     Dates: start: 20170620
  3. DOXYCYCLINE [Suspect]
     Active Substance: DOXYCYCLINE
     Indication: Chlamydial infection
     Dosage: DOSAGE: 100 MG 1-3 TIMES A DAY FOR 7 DAYS?STRENGTH: 100MG
     Route: 048
     Dates: start: 20210120, end: 20210127
  4. DULOXETINE HYDROCHLORIDE [Suspect]
     Active Substance: DULOXETINE HYDROCHLORIDE
     Indication: Depression
     Dosage: STRENGTH: 30 MG
     Route: 048
     Dates: start: 20170505
  5. QUETIAPINE [Suspect]
     Active Substance: QUETIAPINE
     Indication: Depression
     Dosage: STRENGTH: 25 MG
     Route: 048
     Dates: start: 20170606

REACTIONS (24)
  - Depression [Recovered/Resolved]
  - Neurological symptom [Recovered/Resolved]
  - Pain in extremity [Recovered/Resolved]
  - Thinking abnormal [Recovered/Resolved]
  - Confusional state [Recovered/Resolved]
  - Heat stroke [Recovered/Resolved]
  - Chills [Recovered/Resolved]
  - Major depression [Recovered/Resolved]
  - Facial nerve disorder [Recovered/Resolved]
  - Heart rate irregular [Recovered/Resolved]
  - Brain fog [Recovered/Resolved]
  - Food craving [Recovered/Resolved]
  - Feeling cold [Recovered/Resolved]
  - Arthralgia [Recovered/Resolved]
  - Restlessness [Recovered/Resolved]
  - Back pain [Recovered/Resolved]
  - Hyperhidrosis [Recovered/Resolved]
  - Mental disorder [Recovered/Resolved]
  - Euphoric mood [Recovered/Resolved]
  - Influenza like illness [Recovered/Resolved]
  - Abdominal pain [Recovered/Resolved]
  - Dysmenorrhoea [Recovered/Resolved]
  - Menstrual disorder [Recovered/Resolved]
  - Headache [Recovered/Resolved]

NARRATIVE: CASE EVENT DATE: 20210101
